FAERS Safety Report 5592710-8 (Version None)
Quarter: 2007Q4

REPORT INFORMATION
  Report Type: 
  Country: None (occurrence: None)
  Receive Date: 20071217
  Receipt Date: 20071016
  Transmission Date: 20080405
  Serious: No
  Sender: FDA-Public Use
  Company Number: BDI-010361

PATIENT
  Age: 45 Year
  Sex: Female

DRUGS (6)
  1. MULTIHANCE [Suspect]
     Indication: MIGRAINE
     Dosage: 15 ML ONCE IV
     Route: 042
     Dates: start: 20071005, end: 20071005
  2. MULTIHANCE [Suspect]
     Indication: NUCLEAR MAGNETIC RESONANCE IMAGING BRAIN
     Dosage: 15 ML ONCE IV
     Route: 042
     Dates: start: 20071005, end: 20071005
  3. VICODIN [Concomitant]
  4. IMITREX /01044801/ [Concomitant]
  5. MOTRIN [Concomitant]
  6. TYLENOL /00724201/ [Concomitant]

REACTIONS (2)
  - DYSGEUSIA [None]
  - HYPERSENSITIVITY [None]
